FAERS Safety Report 4548564-1 (Version None)
Quarter: 2005Q1

REPORT INFORMATION
  Report Type: 
  Country: None (occurrence: None)
  Receive Date: 20050105
  Receipt Date: 20050105
  Transmission Date: 20050727
  Serious: Yes (Hospitalization)
  Sender: FDA-Public Use
  Company Number: None

PATIENT
  Age: 71 Year
  Sex: Female
  Weight: 58.0604 kg

DRUGS (1)
  1. LAMICTAL [Suspect]
     Indication: MIGRAINE
     Dosage: 150 MG DAILY

REACTIONS (3)
  - DIZZINESS [None]
  - FALL [None]
  - RASH [None]
